FAERS Safety Report 5089502-5 (Version None)
Quarter: 2006Q3

REPORT INFORMATION
  Report Type: 
  Country: None (occurrence: None)
  Receive Date: 20060822
  Receipt Date: 20060810
  Transmission Date: 20061208
  Serious: Yes (Life-Threatening, Hospitalization)
  Sender: FDA-Public Use
  Company Number: T200600877

PATIENT
  Age: 45 Year
  Sex: Female

DRUGS (2)
  1. OPTIRAY 320 [Suspect]
     Indication: COMPUTERISED TOMOGRAM
     Dosage: SINGLE, INTRAVENOUS
     Route: 042
     Dates: start: 20060810, end: 20060810
  2. OPTIRAY 320 [Suspect]

REACTIONS (5)
  - AIR EMBOLISM [None]
  - CARDIO-RESPIRATORY ARREST [None]
  - DRUG DISPENSING ERROR [None]
  - POOR QUALITY DRUG ADMINISTERED [None]
  - PROCEDURAL COMPLICATION [None]
